FAERS Safety Report 15594619 (Version 1)
Quarter: 2018Q4

REPORT INFORMATION
  Report Type: Spontaneous
  Country: US (occurrence: US)
  Receive Date: 20181106
  Receipt Date: 20181106
  Transmission Date: 20190205
  Serious: Yes (Other)
  Sender: FDA-Public Use
  Company Number: US-SA-2018SA047099

PATIENT
  Age: 47 Year
  Sex: Female
  Weight: 86.8 kg

DRUGS (13)
  1. ALOXI [Concomitant]
     Active Substance: PALONOSETRON HYDROCHLORIDE
     Dosage: .25 MG,UNK
     Route: 042
  2. CARBOPLATIN. [Concomitant]
     Active Substance: CARBOPLATIN
     Dosage: 872 MG,Q3W
     Route: 065
     Dates: start: 20101119, end: 20101119
  3. CARBOPLATIN. [Concomitant]
     Active Substance: CARBOPLATIN
     Dosage: 872 MG,Q3W
     Route: 065
     Dates: start: 20160314, end: 20160314
  4. TAXOTERE [Suspect]
     Active Substance: DOCETAXEL
     Dosage: 150 MG,Q3W
     Route: 042
     Dates: start: 20110314, end: 20110314
  5. DEXAMETHASONE. [Concomitant]
     Active Substance: DEXAMETHASONE
     Dosage: 20 MG,UNK
     Route: 042
  6. DIPHENHYDRAMINE. [Concomitant]
     Active Substance: DIPHENHYDRAMINE
     Dosage: 25 MG,UNK
     Route: 065
  7. ZOFRAN [ONDANSETRON] [Concomitant]
     Dosage: 16 MG,UNK
     Route: 065
  8. CARBOPLATIN. [Concomitant]
     Active Substance: CARBOPLATIN
     Dosage: 872 MG,Q3W
     Route: 065
     Dates: start: 20110103, end: 20110103
  9. NEULASTA [Concomitant]
     Active Substance: PEGFILGRASTIM
     Dosage: 6 MG,UNK
     Route: 065
  10. TAXOTERE [Suspect]
     Active Substance: DOCETAXEL
     Indication: BREAST CANCER
     Dosage: 150 MG,Q3W
     Route: 042
     Dates: start: 20101119, end: 20101119
  11. CARBOPLATIN. [Concomitant]
     Active Substance: CARBOPLATIN
     Dosage: 872 MG,Q3W
     Route: 065
     Dates: start: 20110201, end: 20110201
  12. CARBOPLATIN. [Concomitant]
     Active Substance: CARBOPLATIN
     Dosage: 872 MG,Q3W
     Route: 065
     Dates: start: 20101213, end: 20101213
  13. CARBOPLATIN. [Concomitant]
     Active Substance: CARBOPLATIN
     Dosage: 872 MG,Q3W
     Route: 065
     Dates: start: 20110131, end: 20110131

REACTIONS (6)
  - Pain [Unknown]
  - Psychological trauma [Unknown]
  - Impaired quality of life [Unknown]
  - Alopecia [Recovering/Resolving]
  - Anxiety [Unknown]
  - Emotional distress [Unknown]

NARRATIVE: CASE EVENT DATE: 20110314
